FAERS Safety Report 12230438 (Version 1)
Quarter: 2016Q2

REPORT INFORMATION
  Report Type: Spontaneous
  Country: US (occurrence: US)
  Receive Date: 20160401
  Receipt Date: 20160401
  Transmission Date: 20160815
  Serious: No
  Sender: FDA-Public Use
  Company Number: US-ACTAVIS-2015-24257

PATIENT
  Sex: Female

DRUGS (2)
  1. ESTRADIOL (WATSON LABORATORIES) [Suspect]
     Active Substance: ESTRADIOL
     Indication: HOT FLUSH
     Dosage: 20 MG, DAILY
     Route: 065
     Dates: start: 2007, end: 2009
  2. QUINAPRIL. [Concomitant]
     Active Substance: QUINAPRIL
     Indication: PRODUCT USED FOR UNKNOWN INDICATION
     Dosage: UNK, UNKNOWN
     Route: 065
     Dates: start: 2004

REACTIONS (2)
  - Feeling cold [Unknown]
  - Weight decreased [Unknown]
